FAERS Safety Report 23201966 (Version 2)
Quarter: 2024Q1

REPORT INFORMATION
  Report Type: Spontaneous
  Country: BR (occurrence: BR)
  Receive Date: 20231120
  Receipt Date: 20240328
  Transmission Date: 20240410
  Serious: Yes (Other)
  Sender: FDA-Public Use
  Company Number: BR-JNJFOC-20231134209

PATIENT
  Sex: Male

DRUGS (1)
  1. ERLEADA [Suspect]
     Active Substance: APALUTAMIDE
     Indication: Prostate cancer
     Dosage: 6 MONTHS
     Route: 048

REACTIONS (4)
  - Neuropathy peripheral [Unknown]
  - Hypothyroidism [Unknown]
  - Pruritus [Unknown]
  - Rash [Unknown]
